FAERS Safety Report 6336388-4 (Version None)
Quarter: 2009Q3

REPORT INFORMATION
  Report Type: 
  Country: None (occurrence: None)
  Receive Date: 20090828
  Receipt Date: 20090818
  Transmission Date: 20100115
  Serious: Yes (Life-Threatening, Hospitalization)
  Sender: FDA-Public Use
  Company Number: ADR13342009

PATIENT
  Age: 71 Year
  Sex: Female

DRUGS (5)
  1. CITALOPRAM HYDROBROMIDE [Suspect]
     Indication: DEPRESSION
     Dosage: 40MG ORAL
     Route: 048
  2. BENDROFLUMETHIAZIDE [Concomitant]
  3. IISINOPRIL [Concomitant]
  4. METOCLOPRAMIDE [Concomitant]
  5. OMEPRAZOLE [Concomitant]

REACTIONS (3)
  - MUSCLE RIGIDITY [None]
  - RENAL IMPAIRMENT [None]
  - SEROTONIN SYNDROME [None]
